FAERS Safety Report 6391319-6 (Version None)
Quarter: 2009Q4

REPORT INFORMATION
  Report Type: 
  Country: None (occurrence: None)
  Receive Date: 20091007
  Receipt Date: 20091001
  Transmission Date: 20100525
  Serious: Yes (Death)
  Sender: FDA-Public Use
  Company Number: PHHY2009CA40021

PATIENT
  Sex: Female

DRUGS (3)
  1. ACLASTA [Suspect]
     Indication: OSTEOPOROSIS
     Dosage: 5 MG ONCE YEARLY
     Dates: start: 20080527
  2. ACLASTA [Suspect]
     Dosage: 5 MG ONCE YEARLY
     Dates: start: 20090527
  3. ENBREL [Concomitant]
     Indication: RHEUMATOID ARTHRITIS

REACTIONS (2)
  - SALMONELLOSIS [None]
  - SEPSIS [None]
